FAERS Safety Report 6916636-X (Version None)
Quarter: 2010Q3

REPORT INFORMATION
  Report Type: 
  Country: None (occurrence: None)
  Receive Date: 20100810
  Receipt Date: 20090116
  Transmission Date: 20110219
  Serious: No
  Sender: FDA-Public Use
  Company Number: US-PFIZER INC-2008101547

PATIENT
  Sex: Male
  Weight: 102.27 kg

DRUGS (2)
  1. NAVANE [Suspect]
     Dosage: 5 MG, 2X/DAY
     Route: 048
     Dates: start: 19820701
  2. TOFRANIL [Suspect]
     Dosage: UNK

REACTIONS (4)
  - BRADYPHRENIA [None]
  - FATIGUE [None]
  - SOMNOLENCE [None]
  - TACHYPHRENIA [None]
